FAERS Safety Report 7346868-0 (Version None)
Quarter: 2011Q1

REPORT INFORMATION
  Report Type: 
  Country: None (occurrence: None)
  Receive Date: 20110302
  Receipt Date: 20110215
  Transmission Date: 20110831
  Serious: Yes (Other)
  Sender: FDA-Public Use
  Company Number: 2011SP007870

PATIENT
  Age: 17 Year
  Sex: Male

DRUGS (2)
  1. AERIUS (DESLORATADINE /01398501/) [Suspect]
     Indication: SEASONAL ALLERGY
  2. NASONEX [Concomitant]

REACTIONS (1)
  - MYALGIA [None]
